FAERS Safety Report 8328896-1 (Version None)
Quarter: 2012Q2

REPORT INFORMATION
  Report Type: 
  Country: None (occurrence: None)
  Receive Date: 20120502
  Receipt Date: 20120423
  Transmission Date: 20120825
  Serious: Yes (Hospitalization)
  Sender: FDA-Public Use
  Company Number: JP-SANOFI-AVENTIS-2012SA029473

PATIENT
  Age: 75 Year
  Sex: Male

DRUGS (2)
  1. DOCETAXEL [Suspect]
     Indication: PROSTATE CANCER
     Dosage: CYCLE 1 TO 3
     Route: 042
     Dates: end: 20120222
  2. PREDNISOLONE [Concomitant]
     Indication: PROSTATE CANCER

REACTIONS (1)
  - HAEMOLYSIS [None]
